FAERS Safety Report 9079083 (Version 1)
Quarter: 2013Q1

REPORT INFORMATION
  Report Type: Report from Study
  Country: US (occurrence: US)
  Receive Date: 20130130
  Receipt Date: 20130130
  Transmission Date: 20140127
  Serious: No
  Sender: FDA-Public Use
  Company Number: US-ABBOTT-12P-163-0958610-00

PATIENT
  Age: 67 Year
  Sex: Female

DRUGS (5)
  1. HUMIRA 40 MG/0.8 ML PEN [Suspect]
     Indication: RHEUMATOID ARTHRITIS
     Dates: start: 201108, end: 20120713
  2. SYNTHROID [Concomitant]
     Indication: THYROID DISORDER
  3. LASIX [Concomitant]
     Indication: FLUID RETENTION
  4. DIOVAN [Concomitant]
     Indication: HYPERTENSION
  5. LYRICA [Concomitant]
     Indication: PAIN

REACTIONS (2)
  - Swelling [Recovered/Resolved]
  - Injection site erythema [Recovered/Resolved]
